FAERS Safety Report 22644720 (Version 1)
Quarter: 2023Q2

REPORT INFORMATION
  Report Type: Spontaneous
  Country: US (occurrence: US)
  Receive Date: 20230627
  Receipt Date: 20230627
  Transmission Date: 20230722
  Serious: No
  Sender: FDA-Public Use
  Company Number: US-BRISTOL-MYERS SQUIBB COMPANY-2023-090219

PATIENT
  Age: 45 Year
  Sex: Male

DRUGS (2)
  1. SOTYKTU [Suspect]
     Active Substance: DEUCRAVACITINIB
     Indication: Psoriasis
     Dosage: DOSE : 6MG;     FREQ : 6MG ONCE A DAY
     Route: 048
  2. CLOBETASOL [Concomitant]
     Active Substance: CLOBETASOL
     Indication: Product used for unknown indication

REACTIONS (2)
  - Headache [Recovered/Resolved]
  - Fatigue [Unknown]
